FAERS Safety Report 4795092-4 (Version None)
Quarter: 2005Q4

REPORT INFORMATION
  Report Type: 
  Country: None (occurrence: None)
  Receive Date: 20051007
  Receipt Date: 20051007
  Transmission Date: 20060501
  Serious: Yes (Other)
  Sender: FDA-Public Use
  Company Number: None

PATIENT
  Sex: Male
  Weight: 142.8831 kg

DRUGS (4)
  1. PROTONIX [Suspect]
     Indication: GASTRIC PH DECREASED
     Dosage: 40MG  1X PO
     Route: 048
     Dates: start: 20041201, end: 20050914
  2. LEVOTHROID [Concomitant]
  3. ZOLOFT [Concomitant]
  4. DYNACIRC [Concomitant]

REACTIONS (8)
  - AGGRESSION [None]
  - ANGER [None]
  - DEPRESSION [None]
  - LIBIDO DECREASED [None]
  - PARANOIA [None]
  - SCREAMING [None]
  - SUICIDAL IDEATION [None]
  - SUSPICIOUSNESS [None]
